FAERS Safety Report 4281646-0 (Version None)
Quarter: 2004Q1

REPORT INFORMATION
  Report Type: 
  Country: None (occurrence: None)
  Receive Date: 20040120
  Receipt Date: 20031031
  Transmission Date: 20041129
  Serious: No
  Sender: FDA-Public Use
  Company Number: 2003-11-0954

PATIENT
  Age: 63 Year
  Sex: Female

DRUGS (1)
  1. CLARINEX [Suspect]
     Indication: SINUSITIS
     Dosage: 1 QD ORAL
     Route: 048
     Dates: start: 20021031, end: 20031031

REACTIONS (2)
  - BRONCHIAL INFECTION [None]
  - DRUG INEFFECTIVE [None]
